FAERS Safety Report 5046516-9 (Version None)
Quarter: 2006Q2

REPORT INFORMATION
  Report Type: 
  Country: None (occurrence: None)
  Receive Date: 20060629
  Receipt Date: 20060616
  Transmission Date: 20061013
  Serious: Yes (Other)
  Sender: FDA-Public Use
  Company Number: 2006077325

PATIENT
  Age: 59 Year
  Sex: Male

DRUGS (1)
  1. DILANTIN [Suspect]
     Indication: CONVULSION
     Dosage: (3 AT BEDTIME)

REACTIONS (2)
  - CONVULSION [None]
  - DRUG INEFFECTIVE [None]
